FAERS Safety Report 12132671 (Version 1)
Quarter: 2016Q1

REPORT INFORMATION
  Report Type: Spontaneous
  Country: US (occurrence: US)
  Receive Date: 20160301
  Receipt Date: 20160301
  Transmission Date: 20160526
  Serious: No
  Sender: FDA-Public Use
  Company Number: US-TEVA-638309USA

PATIENT
  Sex: Female

DRUGS (1)
  1. QVAR [Suspect]
     Active Substance: BECLOMETHASONE DIPROPIONATE
     Dosage: 160 MICROGRAM DAILY; 1 PUFF 2 TIMES A DAY
     Route: 055

REACTIONS (5)
  - Influenza [Unknown]
  - Exposure to toxic agent [Unknown]
  - Presyncope [Unknown]
  - Hypersensitivity [Unknown]
  - Dyspnoea [Unknown]
